FAERS Safety Report 23387076 (Version 1)
Quarter: 2024Q1

REPORT INFORMATION
  Report Type: Spontaneous
  Country: CA (occurrence: CA)
  Receive Date: 20240110
  Receipt Date: 20240110
  Transmission Date: 20240410
  Serious: Yes (Other)
  Sender: FDA-Public Use
  Company Number: CA-TEVA-VS-3139571

PATIENT

DRUGS (1)
  1. PREDNISONE [Suspect]
     Active Substance: PREDNISONE
     Route: 065

REACTIONS (4)
  - Visual impairment [Unknown]
  - Blood pressure increased [Unknown]
  - Chest pain [Unknown]
  - Insomnia [Unknown]
